FAERS Safety Report 24525844 (Version 4)
Quarter: 2025Q3

REPORT INFORMATION
  Report Type: Report from Study
  Country: US (occurrence: US)
  Receive Date: 20241020
  Receipt Date: 20250810
  Transmission Date: 20251020
  Serious: Yes (Hospitalization, Other)
  Sender: ALEXION PHARMACEUTICALS
  Company Number: US-AstraZeneca-CH-00726183A

PATIENT
  Sex: Female

DRUGS (1)
  1. SOLIRIS [Suspect]
     Active Substance: ECULIZUMAB
     Indication: Paroxysmal nocturnal haemoglobinuria
     Dosage: UNK, Q2W

REACTIONS (6)
  - Meningitis [Unknown]
  - Nausea [Unknown]
  - General physical health deterioration [Unknown]
  - Dysphonia [Unknown]
  - Dizziness [Unknown]
  - Nervous system disorder [Unknown]
